FAERS Safety Report 9322370 (Version 1)
Quarter: 2013Q2

REPORT INFORMATION
  Report Type: Spontaneous
  Country: US (occurrence: US)
  Receive Date: 20130531
  Receipt Date: 20130531
  Transmission Date: 20140414
  Serious: Yes (Hospitalization)
  Sender: FDA-Public Use
  Company Number: US-ASTRAZENECA-2013SE36639

PATIENT
  Age: 67 Year
  Sex: Female

DRUGS (10)
  1. LISINOPRIL [Suspect]
     Route: 065
  2. METOPROLOL [Suspect]
     Route: 065
  3. OMEPRAZOLE [Suspect]
     Route: 065
  4. ROSUVASTATIN CALCIUM [Suspect]
     Route: 065
  5. BRILINTA [Suspect]
     Indication: STENT PLACEMENT
     Route: 048
  6. ALOPURINOL [Concomitant]
  7. COLCHICINE [Concomitant]
  8. LASIX [Concomitant]
  9. SPIRANOLACTONE [Concomitant]
  10. ASPRIN [Concomitant]

REACTIONS (1)
  - Gastrointestinal haemorrhage [Recovered/Resolved]
